FAERS Safety Report 8265328-6 (Version None)
Quarter: 2012Q2

REPORT INFORMATION
  Report Type: 
  Country: None (occurrence: None)
  Receive Date: 20120406
  Receipt Date: 20120327
  Transmission Date: 20120825
  Serious: Yes (Hospitalization)
  Sender: FDA-Public Use
  Company Number: US-ALLERGAN-1202687US

PATIENT
  Age: 32 Year
  Sex: Female

DRUGS (2)
  1. BOTOX COSMETIC [Suspect]
  2. BOTOX COSMETIC [Suspect]
     Indication: SKIN WRINKLING
     Dosage: 28 UNITS, SINGLE
     Route: 030
     Dates: start: 20120214, end: 20120214

REACTIONS (11)
  - DYSPNOEA [None]
  - CONVULSION [None]
  - DRUG HYPERSENSITIVITY [None]
  - HEADACHE [None]
  - THROAT TIGHTNESS [None]
  - HYPERSENSITIVITY [None]
  - DRY THROAT [None]
  - VISION BLURRED [None]
  - NECK PAIN [None]
  - HYPOAESTHESIA [None]
  - PRURITUS [None]
